FAERS Safety Report 20431200 (Version 1)
Quarter: 2022Q1

REPORT INFORMATION
  Report Type: Report from Study
  Country: US (occurrence: US)
  Receive Date: 20220204
  Receipt Date: 20220204
  Transmission Date: 20220423
  Serious: Yes (Hospitalization)
  Sender: FDA-Public Use
  Company Number: None

PATIENT

DRUGS (12)
  1. ONCASPAR [Suspect]
     Active Substance: PEGASPARGASE
     Indication: Acute lymphocytic leukaemia
     Dosage: 1300 IU, ONE DOSE
     Route: 042
     Dates: start: 20190314
  2. RUXOLITINIB PHOSPHATE [Suspect]
     Active Substance: RUXOLITINIB PHOSPHATE
     Indication: Acute lymphocytic leukaemia
     Dosage: 25 MG, BID
     Route: 048
     Dates: start: 20190228
  3. CYCLOPHOSPHAMIDE [Suspect]
     Active Substance: CYCLOPHOSPHAMIDE
     Indication: Acute lymphocytic leukaemia
     Dosage: 520 MG, ONCE
     Route: 042
     Dates: start: 20190228
  4. CYTARABINE [Suspect]
     Active Substance: CYTARABINE
     Indication: Acute lymphocytic leukaemia
     Dosage: 39 MG, QD
     Route: 042
     Dates: start: 20190228, end: 20190303
  5. CYTARABINE [Suspect]
     Active Substance: CYTARABINE
     Dosage: 39 UNK, QD
     Route: 042
     Dates: start: 20190307
  6. THIOGUANINE [Suspect]
     Active Substance: THIOGUANINE
     Indication: Acute lymphocytic leukaemia
     Dosage: 220 MG, WEEKLY
     Route: 048
     Dates: start: 20190228
  7. VINCRISTINE [Suspect]
     Active Substance: VINCRISTINE
     Indication: Acute lymphocytic leukaemia
     Dosage: 0.78 MG, SINGLE
     Route: 042
     Dates: start: 20190314, end: 20190321
  8. METHOTREXATE [Suspect]
     Active Substance: METHOTREXATE
     Indication: Acute lymphocytic leukaemia
     Dosage: 10 MG, SINGLE
     Route: 037
     Dates: start: 20190228, end: 20190228
  9. METHOTREXATE [Suspect]
     Active Substance: METHOTREXATE
     Dosage: 10 MG, SINGLE
     Route: 037
     Dates: start: 20190308
  10. ONDANSETRON [Concomitant]
     Active Substance: ONDANSETRON
     Indication: Product used for unknown indication
     Dosage: UNK
     Route: 065
     Dates: start: 20180726
  11. BACTRIM [Concomitant]
     Active Substance: SULFAMETHOXAZOLE\TRIMETHOPRIM
     Indication: Product used for unknown indication
     Dosage: UNK
     Route: 065
     Dates: start: 20180728
  12. PERIATIN [Concomitant]
     Indication: Product used for unknown indication
     Dosage: UNK
     Route: 065
     Dates: start: 20190315, end: 20190315

REACTIONS (4)
  - Hepatic vein occlusion [Recovered/Resolved]
  - Platelet count decreased [Recovered/Resolved]
  - Alanine aminotransferase increased [Recovered/Resolved]
  - Serum ferritin increased [Recovered/Resolved]

NARRATIVE: CASE EVENT DATE: 20190314
